FAERS Safety Report 26168224 (Version 1)
Quarter: 2025Q4

REPORT INFORMATION
  Report Type: Report from Study
  Country: US (occurrence: US)
  Receive Date: 20251217
  Receipt Date: 20251217
  Transmission Date: 20260117
  Serious: Yes (Other)
  Sender: ABBVIE
  Company Number: US-ABBVIE-6591566

PATIENT
  Age: 43 Year
  Sex: Female

DRUGS (2)
  1. HUMIRA [Suspect]
     Active Substance: ADALIMUMAB
     Indication: Hidradenitis
     Route: 058
     Dates: start: 20201210
  2. SPIRONOLACTONE [Concomitant]
     Active Substance: SPIRONOLACTONE
     Indication: Product used for unknown indication
     Dates: start: 2025

REACTIONS (5)
  - Spondylitis [Unknown]
  - Pancreatitis [Unknown]
  - Rash [Not Recovered/Not Resolved]
  - Endometriosis [Unknown]
  - Disability [Unknown]

NARRATIVE: CASE EVENT DATE: 20230101
